FAERS Safety Report 16157843 (Version 4)
Quarter: 2019Q2

REPORT INFORMATION
  Report Type: Report from Study
  Country: FR (occurrence: FR)
  Receive Date: 20190404
  Receipt Date: 20190621
  Transmission Date: 20190711
  Serious: Yes (Hospitalization)
  Sender: FDA-Public Use
  Company Number: FR-PFIZER INC-2019138928

PATIENT
  Age: 86 Year
  Sex: Male
  Weight: 94 kg

DRUGS (1)
  1. DOCETAXEL. [Suspect]
     Active Substance: DOCETAXEL
     Indication: PROSTATE CANCER METASTATIC
     Dosage: UNK
     Route: 065

REACTIONS (23)
  - Fall [Unknown]
  - Psoriasis [Unknown]
  - Back pain [Unknown]
  - Weight decreased [Unknown]
  - Choking sensation [Unknown]
  - Asthenia [Unknown]
  - Fatigue [Unknown]
  - Stomatitis [Unknown]
  - Diarrhoea [Unknown]
  - Corneal oedema [Unknown]
  - Back pain [Unknown]
  - Haematuria [Unknown]
  - Fatigue [Unknown]
  - Ageusia [Unknown]
  - Asthenia [Unknown]
  - Oedema peripheral [Unknown]
  - Decreased appetite [Unknown]
  - Cough [Unknown]
  - Fatigue [Unknown]
  - Visual impairment [Unknown]
  - Decreased appetite [Unknown]
  - Cough [Unknown]
  - Stomatitis [Unknown]

NARRATIVE: CASE EVENT DATE: 20190310
